FAERS Safety Report 7228956-2 (Version None)
Quarter: 2011Q1

REPORT INFORMATION
  Report Type: 
  Country: None (occurrence: None)
  Receive Date: 20110117
  Receipt Date: 20110106
  Transmission Date: 20110831
  Serious: Yes (Other)
  Sender: FDA-Public Use
  Company Number: IT-JNJFOC-20110101517

PATIENT

DRUGS (20)
  1. CAELYX [Suspect]
     Indication: IMMUNOBLASTIC LYMPHOMA
     Route: 042
  2. CISPLATIN [Suspect]
     Indication: IMMUNOBLASTIC LYMPHOMA
     Route: 065
  3. CYCLOPHOSPHAMIDE [Suspect]
     Indication: PERIPHERAL T-CELL LYMPHOMA UNSPECIFIED
     Route: 065
  4. PREDNISOLONE [Suspect]
     Indication: PERIPHERAL T-CELL LYMPHOMA UNSPECIFIED
     Route: 065
  5. DEXAMETHASONE [Suspect]
     Indication: PERIPHERAL T-CELL LYMPHOMA UNSPECIFIED
     Route: 065
  6. PREDNISOLONE [Suspect]
     Route: 048
  7. CYCLOPHOSPHAMIDE [Suspect]
     Indication: IMMUNOBLASTIC LYMPHOMA
     Route: 065
  8. PREDNISOLONE [Suspect]
     Indication: IMMUNOBLASTIC LYMPHOMA
     Route: 065
  9. DEXAMETHASONE [Suspect]
     Indication: IMMUNOBLASTIC LYMPHOMA
     Route: 065
  10. CYTARABINE [Suspect]
     Indication: PERIPHERAL T-CELL LYMPHOMA UNSPECIFIED
     Route: 065
  11. CYCLOPHOSPHAMIDE [Suspect]
     Route: 048
  12. CAELYX [Suspect]
     Indication: PERIPHERAL T-CELL LYMPHOMA UNSPECIFIED
     Route: 042
  13. VINCRISTINE [Suspect]
     Indication: IMMUNOBLASTIC LYMPHOMA
     Route: 065
  14. VINCRISTINE [Suspect]
     Indication: PERIPHERAL T-CELL LYMPHOMA UNSPECIFIED
     Route: 065
  15. ALEMTUZUMAB [Suspect]
     Indication: IMMUNOBLASTIC LYMPHOMA
     Route: 065
  16. CYTARABINE [Suspect]
     Indication: IMMUNOBLASTIC LYMPHOMA
     Route: 065
  17. CYCLOPHOSPHAMIDE [Suspect]
     Route: 048
  18. PREDNISOLONE [Suspect]
     Route: 048
  19. ALEMTUZUMAB [Suspect]
     Indication: PERIPHERAL T-CELL LYMPHOMA UNSPECIFIED
     Route: 065
  20. CISPLATIN [Suspect]
     Indication: PERIPHERAL T-CELL LYMPHOMA UNSPECIFIED
     Route: 065

REACTIONS (1)
  - CYTOMEGALOVIRUS COLITIS [None]
